FAERS Safety Report 12182638 (Version 2)
Quarter: 2016Q1

REPORT INFORMATION
  Report Type: Spontaneous
  Country: IT (occurrence: IT)
  Receive Date: 20160316
  Receipt Date: 20160323
  Transmission Date: 20160526
  Serious: Yes (Hospitalization)
  Sender: FDA-Public Use
  Company Number: IT-ROCHE-1725763

PATIENT
  Age: 94 Year
  Sex: Female

DRUGS (7)
  1. FERRO-GRAD [Concomitant]
     Active Substance: FERROUS SULFATE\FERROUS SULFATE, DRIED
     Dosage: 105 MG 40 TABLETS
     Route: 048
  2. COUMADIN [Interacting]
     Active Substance: WARFARIN SODIUM
     Indication: ATRIAL FIBRILLATION
     Dosage: 5 MG TABLETS, 30 SCORED TABLETS
     Route: 048
  3. PARACETAMOL [Concomitant]
     Active Substance: ACETAMINOPHEN
     Indication: HYPERPYREXIA
  4. MEPRAL [Concomitant]
     Active Substance: OMEPRAZOLE SODIUM
     Dosage: 10 MG 14 CAPSULES
     Route: 048
  5. LASIX [Concomitant]
     Active Substance: FUROSEMIDE
     Dosage: 25 MG TABLETS,30 TABLETS
     Route: 002
  6. CEFTRIAXONE. [Suspect]
     Active Substance: CEFTRIAXONE
     Indication: PNEUMONITIS
     Route: 065
  7. CLOPIXOL [Concomitant]
     Active Substance: ZUCLOPENTHIXOL ACETATE
     Dosage: 10 MG 30 TABLETS
     Route: 048

REACTIONS (5)
  - International normalised ratio increased [Unknown]
  - Abdominal pain [Recovering/Resolving]
  - Drug interaction [Unknown]
  - Gastrointestinal motility disorder [Recovering/Resolving]
  - Astringent therapy [Recovering/Resolving]

NARRATIVE: CASE EVENT DATE: 20160118
